FAERS Safety Report 7453627-7 (Version None)
Quarter: 2011Q2

REPORT INFORMATION
  Report Type: 
  Country: None (occurrence: None)
  Receive Date: 20110502
  Receipt Date: 20081014
  Transmission Date: 20111010
  Serious: Yes (Hospitalization, Other)
  Sender: FDA-Public Use
  Company Number: US-BAYER-200836072NA

PATIENT
  Age: 59 Year
  Sex: Male
  Weight: 100.23 kg

DRUGS (21)
  1. PRAVACHOL [Concomitant]
     Route: 048
  2. LORAZEPAM [Concomitant]
     Dosage: UNK
     Dates: start: 20030617, end: 20030617
  3. HEPARIN [Concomitant]
     Dosage: 34000 U, UNK
     Route: 042
     Dates: start: 20030617
  4. LANOXIN [Concomitant]
     Route: 048
  5. LIDOCAINE [Concomitant]
     Indication: CARDIOPULMONARY BYPASS
     Dosage: 100 MG, UNK
     Dates: start: 20030617, end: 20030617
  6. CALCIUM CHLORIDE [Concomitant]
     Indication: CARDIOPULMONARY BYPASS
     Dosage: 1 G, UNK
     Dates: start: 20030617, end: 20030617
  7. LASIX [Concomitant]
     Dosage: 10 MG, UNK
     Route: 042
     Dates: start: 20030617
  8. MANNITOL [Concomitant]
     Indication: CARDIOPULMONARY BYPASS
     Dosage: 26 MEQ, UNK
     Dates: start: 20030617, end: 20030617
  9. DEPAKOTE [Concomitant]
     Dosage: 500 MG, QD
     Route: 048
  10. COUMADIN [Concomitant]
     Dosage: 2.5 MG, UNK
     Route: 048
  11. PROPOFOL [Concomitant]
     Dosage: UNK
     Dates: start: 20030617, end: 20030617
  12. SEVOFLURANE [Concomitant]
     Dosage: INHALANT
     Dates: start: 20030617, end: 20030617
  13. LASIX [Concomitant]
     Dosage: 40 MG, QD
     Route: 048
  14. PROTAMINE SULFATE [Concomitant]
     Dosage: 50 MG, UNK
     Route: 042
     Dates: start: 20030617
  15. PLASMALYTE [GLUCOSE,POTASSIUM CHLORIDE] [Concomitant]
     Indication: CARDIOPULMONARY BYPASS
     Dosage: 1700 ML
     Dates: start: 20030617, end: 20030617
  16. TRASYLOL [Suspect]
     Indication: AORTIC VALVE REPLACEMENT
     Dosage: 200 ML LOADING DOSE FOLLOWED BY 50 ML / HOUR DRIP
     Route: 042
     Dates: start: 20030617, end: 20030617
  17. FENTANYL [Concomitant]
     Dosage: UNK
     Dates: start: 20030617, end: 20030617
  18. VANCOMYCIN [Concomitant]
     Dosage: 1 G, UNK
     Route: 042
     Dates: start: 20030617, end: 20030617
  19. ANCEF [Concomitant]
     Dosage: 2 G, UNK
     Route: 042
     Dates: start: 20030617, end: 20030617
  20. TRASYLOL [Suspect]
  21. TENORMIN [Concomitant]
     Dosage: 50 MG, QD
     Route: 048

REACTIONS (10)
  - ADVERSE EVENT [None]
  - RENAL IMPAIRMENT [None]
  - INJURY [None]
  - RENAL FAILURE ACUTE [None]
  - EMOTIONAL DISTRESS [None]
  - DEFORMITY [None]
  - UNEVALUABLE EVENT [None]
  - GENERAL PHYSICAL HEALTH DETERIORATION [None]
  - ORGAN FAILURE [None]
  - PAIN [None]
